APPROVED DRUG PRODUCT: AMITRIPTYLINE HYDROCHLORIDE
Active Ingredient: AMITRIPTYLINE HYDROCHLORIDE
Strength: 75MG
Dosage Form/Route: TABLET;ORAL
Application: A088424 | Product #001
Applicant: COPLEY PHARMACEUTICAL INC
Approved: Apr 30, 1984 | RLD: No | RS: No | Type: DISCN